FAERS Safety Report 7624580-8 (Version None)
Quarter: 2011Q3

REPORT INFORMATION
  Report Type: 
  Country: None (occurrence: None)
  Receive Date: 20110720
  Receipt Date: 20090216
  Transmission Date: 20111222
  Serious: Yes (Death, Other)
  Sender: FDA-Public Use
  Company Number: US-BAYER-200913503NA

PATIENT
  Age: 2 Year
  Sex: Female
  Weight: 9.977 kg

DRUGS (18)
  1. TRASYLOL [Suspect]
     Indication: PRODUCT USED FOR UNKNOWN INDICATION
     Dosage: 1 ML INITIAL TEST DOSE
     Route: 042
     Dates: start: 20060410, end: 20060410
  2. TRASYLOL [Suspect]
     Dosage: 41 ML LOADING DOSE
     Route: 042
     Dates: start: 20060410, end: 20060410
  3. BACITRACIN [Concomitant]
     Dosage: 50,000 UNITS
     Route: 042
     Dates: start: 20060410, end: 20060410
  4. LASIX [Concomitant]
     Dosage: 9 MG, QD
     Route: 048
  5. HEPARIN [Concomitant]
     Dosage: 40 UNITS/ML
     Route: 042
     Dates: start: 20060410, end: 20060410
  6. ZINACEF [Concomitant]
     Dosage: 500 MG
     Route: 042
     Dates: start: 20060410, end: 20060410
  7. ACETYLSALICYLIC ACID SRT [Concomitant]
     Dosage: 40 MG, QD
     Route: 048
  8. HEPARIN [Concomitant]
     Dosage: 2,500 UNITS
     Route: 042
     Dates: start: 20060410, end: 20060410
  9. MAGNESIUM SULFATE [Concomitant]
     Dosage: 515 MG
     Route: 042
     Dates: start: 20060410, end: 20060410
  10. TRASYLOL [Suspect]
     Dosage: 2.5 ML/HOUR INFUSION
     Route: 042
     Dates: start: 20060410, end: 20060410
  11. CEFUROXIME [Concomitant]
     Dosage: 520 MG
     Route: 042
     Dates: start: 20060410, end: 20060410
  12. SOLU-MEDROL [Concomitant]
     Dosage: 309 MG
     Route: 042
     Dates: start: 20060410, end: 20060410
  13. AMPICILLIN SODIUM [Concomitant]
     Dosage: UNK
     Dates: start: 20040501
  14. GENTAMICIN [Concomitant]
     Dosage: UNK
     Dates: start: 20040501
  15. SODIUM BICARBONATE [Concomitant]
     Dosage: 12 MILLIEQUIVILANTS
     Route: 042
     Dates: start: 20060410, end: 20060410
  16. AMOXICILLIN [Concomitant]
     Dosage: UNK
     Dates: start: 20040717, end: 20041217
  17. ENALAPRIL MALEATE [Concomitant]
     Dosage: 1.8 MG, BID
     Route: 048
  18. PLATELETS [Concomitant]
     Dosage: 1 U, ONCE
     Route: 042
     Dates: start: 20060410

REACTIONS (15)
  - STRESS [None]
  - RENAL IMPAIRMENT [None]
  - HEPATIC FAILURE [None]
  - LEG AMPUTATION [None]
  - MULTI-ORGAN FAILURE [None]
  - CARDIAC FAILURE [None]
  - UNEVALUABLE EVENT [None]
  - PAIN [None]
  - CEREBROVASCULAR ACCIDENT [None]
  - EMOTIONAL DISTRESS [None]
  - ANXIETY [None]
  - FEAR [None]
  - DEATH [None]
  - RENAL FAILURE [None]
  - RENAL INJURY [None]
